FAERS Safety Report 9470534 (Version 1)
Quarter: 2013Q3

REPORT INFORMATION
  Report Type: Spontaneous
  Country: GB (occurrence: None)
  Receive Date: 20130815
  Receipt Date: 20130815
  Transmission Date: 20140515
  Serious: Yes (Life-Threatening, Disabling, Other)
  Sender: FDA-Public Use
  Company Number: 2013GMK006476

PATIENT
  Age: 59 Year
  Sex: Male
  Weight: 93 kg

DRUGS (10)
  1. TOPIRAMATE (TOPIRAMATE) UNKNOWN [Suspect]
     Indication: COMPLEX PARTIAL SEIZURES
     Route: 048
     Dates: start: 20121016
  2. TOPIRAMATE (TOPIRAMATE) UNKNOWN [Suspect]
     Route: 048
     Dates: start: 20121016
  3. CANDESARTAN [Concomitant]
  4. DOXAZOSIN [Concomitant]
  5. IMIPRAMINE [Concomitant]
  6. INSULIN [Concomitant]
  7. LEVETIRACETAM [Concomitant]
  8. METFORMIN [Concomitant]
  9. RISPERIDONE [Concomitant]
  10. VALPROATE [Concomitant]

REACTIONS (3)
  - Delusion [None]
  - Psychotic disorder [None]
  - Hallucination, auditory [None]
